FAERS Safety Report 20233139 (Version 3)
Quarter: 2022Q1

REPORT INFORMATION
  Report Type: Report from Study
  Country: US (occurrence: US)
  Receive Date: 20211227
  Receipt Date: 20220106
  Transmission Date: 20220423
  Serious: Yes (Hospitalization)
  Sender: FDA-Public Use
  Company Number: US-EXELIXIS-XL18421047534

PATIENT

DRUGS (3)
  1. CABOZANTINIB [Suspect]
     Active Substance: CABOZANTINIB
     Indication: Malignant melanoma
     Dosage: 40 MG, QD
     Route: 048
     Dates: start: 20201109, end: 20210426
  2. NIVOLUMAB [Suspect]
     Active Substance: NIVOLUMAB
     Indication: Malignant melanoma
     Dosage: 3 MG/KG, Q3WEEKS
     Route: 042
     Dates: start: 20201109, end: 20210719
  3. IPILIMUMAB [Suspect]
     Active Substance: IPILIMUMAB
     Indication: Malignant melanoma
     Dosage: 1 MG/KG, Q3WEEKS
     Route: 042
     Dates: start: 20201109, end: 20210719

REACTIONS (2)
  - Myocardial infarction [Unknown]
  - Dehydration [Unknown]

NARRATIVE: CASE EVENT DATE: 20211201
